FAERS Safety Report 7324794-0 (Version None)
Quarter: 2011Q1

REPORT INFORMATION
  Report Type: 
  Country: None (occurrence: None)
  Receive Date: 20110218
  Receipt Date: 20110204
  Transmission Date: 20110831
  Serious: Yes (Other)
  Sender: FDA-Public Use
  Company Number: 2010MA004347

PATIENT
  Age: 39 Year
  Sex: Female

DRUGS (2)
  1. ZOPICLONE [Concomitant]
  2. SERTRALINE HYDROCHLORIDE [Suspect]
     Indication: DEPRESSION
     Dosage: 200 MG, PO
     Route: 048
     Dates: start: 20070101

REACTIONS (2)
  - MEDICATION ERROR [None]
  - HYPOMANIA [None]
